FAERS Safety Report 9920857 (Version 2)
Quarter: 2014Q1

REPORT INFORMATION
  Report Type: Report from Study
  Country: AU (occurrence: AU)
  Receive Date: 20140225
  Receipt Date: 20140225
  Transmission Date: 20141002
  Serious: Yes (Other)
  Sender: FDA-Public Use
  Company Number: AU-ROCHE-1311873

PATIENT
  Age: 66 Year
  Sex: 0

DRUGS (3)
  1. PEG-INTERFERON ALFA 2A [Suspect]
     Indication: CHRONIC HEPATITIS C
     Route: 065
  2. RIBAVIRIN [Suspect]
     Indication: CHRONIC HEPATITIS C
     Route: 065
  3. BOCEPREVIR [Suspect]
     Indication: CHRONIC HEPATITIS C
     Route: 065

REACTIONS (3)
  - Renal impairment [Recovering/Resolving]
  - Nephropathy toxic [Unknown]
  - Hepatic cirrhosis [Unknown]
